FAERS Safety Report 4682658-5 (Version None)
Quarter: 2005Q2

REPORT INFORMATION
  Report Type: 
  Country: None (occurrence: None)
  Receive Date: 20050606
  Receipt Date: 20050427
  Transmission Date: 20051028
  Serious: Yes (Hospitalization, Disabling)
  Sender: FDA-Public Use
  Company Number: FRPFM-S-20050122

PATIENT
  Sex: Female

DRUGS (1)
  1. CIBLOR [Suspect]
     Indication: ACUTE TONSILLITIS
     Route: 048
     Dates: start: 20041118, end: 20041118

REACTIONS (2)
  - DERMATITIS EXFOLIATIVE [None]
  - OEDEMA PERIPHERAL [None]
